FAERS Safety Report 6881785-1 (Version None)
Quarter: 2010Q3

REPORT INFORMATION
  Report Type: 
  Country: None (occurrence: None)
  Receive Date: 20100729
  Receipt Date: 20100720
  Transmission Date: 20110219
  Serious: Yes (Other)
  Sender: FDA-Public Use
  Company Number: FR-PFIZER INC-2010091520

PATIENT
  Age: 36 Year
  Sex: Female

DRUGS (2)
  1. CHAMPIX [Suspect]
     Dosage: UNK
     Dates: start: 20070101
  2. CHAMPIX [Suspect]
     Dosage: UNK
     Dates: start: 20100501

REACTIONS (1)
  - PAROTITIS [None]
